FAERS Safety Report 12627157 (Version 1)
Quarter: 2016Q3

REPORT INFORMATION
  Report Type: Report from Study
  Country: US (occurrence: US)
  Receive Date: 20160805
  Receipt Date: 20160805
  Transmission Date: 20161109
  Serious: Yes (Hospitalization)
  Sender: FDA-Public Use
  Company Number: US-BIOGEN-2016BI00272674

PATIENT
  Age: 72 Year
  Sex: Female

DRUGS (1)
  1. PLEGRIDY [Suspect]
     Active Substance: PEGINTERFERON BETA-1A
     Indication: MULTIPLE SCLEROSIS
     Route: 058
     Dates: start: 20160108

REACTIONS (7)
  - Cognitive disorder [Unknown]
  - Loss of consciousness [Unknown]
  - Traumatic intracranial haemorrhage [Unknown]
  - Fear [Unknown]
  - Haemorrhage [Unknown]
  - Drug dose omission [Unknown]
  - Fall [Recovered/Resolved]

NARRATIVE: CASE EVENT DATE: 20160725
